FAERS Safety Report 8892063 (Version 1)
Quarter: 2012Q4

REPORT INFORMATION
  Report Type: Spontaneous
  Country: US (occurrence: None)
  Receive Date: 20121031
  Receipt Date: 20121031
  Transmission Date: 20130627
  Serious: Yes (Death)
  Sender: FDA-Public Use
  Company Number: DSA_60230_2012

PATIENT
  Sex: Male

DRUGS (1)
  1. XENAZINE 12.5 MG (NOT SPECIFIED) [Suspect]
     Route: 048
     Dates: start: 20090515

REACTIONS (2)
  - Huntington^s disease [None]
  - Disease progression [None]
